FAERS Safety Report 9402006 (Version 1)
Quarter: 2013Q3

REPORT INFORMATION
  Report Type: Spontaneous
  Country: IT (occurrence: IT)
  Receive Date: 20130716
  Receipt Date: 20130716
  Transmission Date: 20140515
  Serious: Yes (Hospitalization)
  Sender: FDA-Public Use
  Company Number: IT-PERRIGO-13IT007069

PATIENT
  Age: 52 Year
  Sex: Female

DRUGS (1)
  1. LANSOPRAZOLE 15 MG 3T3 [Suspect]
     Indication: GASTROOESOPHAGEAL REFLUX DISEASE
     Dosage: ONE TABLET OR CAPSULE, DAILY
     Route: 048

REACTIONS (16)
  - Anaphylactic shock [Recovered/Resolved]
  - Anaphylactic reaction [Recovered/Resolved]
  - Abdominal pain [Recovered/Resolved]
  - Hyperhidrosis [Recovered/Resolved]
  - Nausea [Recovered/Resolved]
  - Vomiting [Recovered/Resolved]
  - Pruritus [Recovered/Resolved]
  - Urticaria [Recovered/Resolved]
  - Visual acuity reduced [Recovered/Resolved]
  - Skin oedema [Recovered/Resolved]
  - Dyspnoea [Recovered/Resolved]
  - Chills [Recovered/Resolved]
  - Laryngeal oedema [Recovered/Resolved]
  - Generalised erythema [Recovered/Resolved]
  - Local swelling [Recovered/Resolved]
  - Dysphagia [Recovered/Resolved]
